FAERS Safety Report 9046202 (Version 1)
Quarter: 2013Q1

REPORT INFORMATION
  Report Type: Spontaneous
  Country: CA (occurrence: CA)
  Receive Date: 20130201
  Receipt Date: 20130201
  Transmission Date: 20140127
  Serious: Yes (Other)
  Sender: FDA-Public Use
  Company Number: PHHY2013CA007980

PATIENT
  Age: 55 Year
  Sex: Female

DRUGS (4)
  1. ZOLEDRONATE [Suspect]
     Dosage: 5 MG, 365 DAYS
     Route: 042
  2. ALENDRONATE [Suspect]
     Dosage: 1 DF (70 MG TABLET ONE EVERY ONE WEEK)
     Route: 048
  3. CALCIUM [Concomitant]
  4. CHOLECALCIFEROL [Concomitant]

REACTIONS (4)
  - Femur fracture [Unknown]
  - Pain in extremity [Unknown]
  - Hypophosphataemia [Unknown]
  - Hyperphosphataemia [Unknown]
